FAERS Safety Report 6832796-3 (Version None)
Quarter: 2010Q3

REPORT INFORMATION
  Report Type: 
  Country: None (occurrence: None)
  Receive Date: 20100712
  Receipt Date: 20070320
  Transmission Date: 20110219
  Serious: Yes (Other)
  Sender: FDA-Public Use
  Company Number: US-PFIZER INC-2007023842

PATIENT
  Sex: Male
  Weight: 81.6 kg

DRUGS (5)
  1. CHANTIX [Suspect]
     Indication: SMOKING CESSATION THERAPY
     Dates: start: 20070312, end: 20070314
  2. PLAVIX [Concomitant]
  3. VYTORIN [Concomitant]
  4. GLUCOTROL [Concomitant]
  5. ALTACE [Concomitant]

REACTIONS (3)
  - AGGRESSION [None]
  - FEELING ABNORMAL [None]
  - SUICIDAL IDEATION [None]
